FAERS Safety Report 6964487-2 (Version None)
Quarter: 2010Q3

REPORT INFORMATION
  Report Type: 
  Country: None (occurrence: None)
  Receive Date: 20100903
  Receipt Date: 20100824
  Transmission Date: 20110219
  Serious: Yes (Other)
  Sender: FDA-Public Use
  Company Number: US-PFIZER INC-2010107370

PATIENT
  Age: 20 Year
  Sex: Female

DRUGS (3)
  1. GEODON [Suspect]
     Indication: PARANOIA
     Dosage: 40 MG, 1X/DAY
     Route: 048
     Dates: start: 20080101
  2. GEODON [Suspect]
     Indication: FEAR
  3. GEODON [Suspect]
     Indication: DELUSION

REACTIONS (7)
  - DELUSION [None]
  - DRUG INEFFECTIVE [None]
  - MYOFASCITIS [None]
  - MYOSITIS [None]
  - PARANOIA [None]
  - TARDIVE DYSKINESIA [None]
  - TEMPOROMANDIBULAR JOINT SYNDROME [None]
